FAERS Safety Report 5426899-8 (Version None)
Quarter: 2007Q3

REPORT INFORMATION
  Report Type: 
  Country: None (occurrence: None)
  Receive Date: 20070827
  Receipt Date: 20070815
  Transmission Date: 20080115
  Serious: Yes (Other)
  Sender: FDA-Public Use
  Company Number: US-PFIZER INC-2007069007

PATIENT
  Sex: Female
  Weight: 84.5 kg

DRUGS (9)
  1. CHANTIX [Suspect]
     Indication: SMOKING CESSATION THERAPY
  2. LIPITOR [Suspect]
     Indication: BLOOD CHOLESTEROL
  3. LOVASTATIN [Suspect]
     Indication: BLOOD CHOLESTEROL
     Dates: start: 20070101, end: 20070101
  4. FLUOXETINE [Concomitant]
  5. LEVOTHYROXINE SODIUM [Concomitant]
  6. LISINOPRIL [Concomitant]
  7. PLAVIX [Concomitant]
  8. MULTIVITAMIN [Concomitant]
  9. HYDROCHLOROTHIAZIDE [Concomitant]

REACTIONS (7)
  - ANAEMIA [None]
  - ASTHENIA [None]
  - FATIGUE [None]
  - MUSCULAR WEAKNESS [None]
  - MYALGIA [None]
  - RENAL IMPAIRMENT [None]
  - WEIGHT INCREASED [None]
